FAERS Safety Report 11511996 (Version 6)
Quarter: 2018Q1

REPORT INFORMATION
  Report Type: Report from Study
  Country: RU (occurrence: RU)
  Receive Date: 20150916
  Receipt Date: 20180202
  Transmission Date: 20180508
  Serious: Yes (Death, Disabling)
  Sender: FDA-Public Use
  Company Number: PHHO2015RU013966

PATIENT
  Age: 11 Year
  Sex: Female
  Weight: 30 kg

DRUGS (5)
  1. BISOPROLOL [Suspect]
     Active Substance: BISOPROLOL
     Dosage: 2.5 MG, QD
     Route: 048
     Dates: start: 20150330, end: 20150820
  2. EVEROLIMUS. [Suspect]
     Active Substance: EVEROLIMUS
     Dosage: (9-15 NG/ML)
     Route: 048
     Dates: start: 20150827, end: 20150828
  3. PHENOBARBITALUM [Concomitant]
     Active Substance: PHENOBARBITAL
     Indication: PRODUCT USED FOR UNKNOWN INDICATION
     Dosage: 150 MG, QD
     Route: 048
     Dates: start: 20140804, end: 20150904
  4. EVEROLIMUS. [Suspect]
     Active Substance: EVEROLIMUS
     Indication: EPILEPSY
     Dosage: (9-15 NG/ML)
     Route: 048
     Dates: start: 20141121, end: 20150820
  5. BISOPROLOL [Suspect]
     Active Substance: BISOPROLOL
     Indication: ARRHYTHMIA
     Dosage: 1.25 MG, QD
     Route: 048
     Dates: start: 201411, end: 20150329

REACTIONS (3)
  - Sudden unexplained death in epilepsy [Fatal]
  - Diarrhoea [Recovered/Resolved]
  - Diarrhoea [Recovered/Resolved]

NARRATIVE: CASE EVENT DATE: 201508
